FAERS Safety Report 13094048 (Version 8)
Quarter: 2018Q4

REPORT INFORMATION
  Report Type: Spontaneous
  Country: US (occurrence: US)
  Receive Date: 20170106
  Receipt Date: 20181112
  Transmission Date: 20190204
  Serious: No
  Sender: FDA-Public Use
  Company Number: US-PFIZER INC-2017000970

PATIENT
  Age: 62 Year
  Sex: Female
  Weight: 104.31 kg

DRUGS (3)
  1. LYRICA [Suspect]
     Active Substance: PREGABALIN
     Indication: DRUG THERAPY ENHANCEMENT
     Dosage: 75 MG, 3X/DAY
     Route: 048
  2. LYRICA [Suspect]
     Active Substance: PREGABALIN
     Indication: PAIN
     Dosage: UNK
  3. LYRICA [Suspect]
     Active Substance: PREGABALIN
     Dosage: UNK UNK, 3X/DAY

REACTIONS (9)
  - Insomnia [Unknown]
  - Gait disturbance [Unknown]
  - Neuralgia [Unknown]
  - Limb discomfort [Unknown]
  - Intentional product use issue [Unknown]
  - Fall [Unknown]
  - Contusion [Unknown]
  - Crying [Unknown]
  - Hypoaesthesia [Unknown]
